FAERS Safety Report 17923056 (Version 4)
Quarter: 2022Q2

REPORT INFORMATION
  Report Type: Spontaneous
  Country: BR (occurrence: BR)
  Receive Date: 20200622
  Receipt Date: 20220628
  Transmission Date: 20220721
  Serious: Yes (Other)
  Sender: FDA-Public Use
  Company Number: BR-GLAXOSMITHKLINE-BR2020AMR103047

PATIENT

DRUGS (2)
  1. ALBUTEROL [Suspect]
     Active Substance: ALBUTEROL
     Indication: Asthma
     Dosage: UNK, 2 INHALERS PER MONTH, 100UG
  2. ALBUTEROL [Suspect]
     Active Substance: ALBUTEROL
     Dosage: 4 PUFF(S), 6D, 100UG

REACTIONS (6)
  - COVID-19 [Unknown]
  - Oral surgery [Unknown]
  - Dyspnoea [Unknown]
  - Product use issue [Unknown]
  - Product administration error [Unknown]
  - Product complaint [Unknown]
